FAERS Safety Report 17886340 (Version 1)
Quarter: 2020Q2

REPORT INFORMATION
  Report Type: Spontaneous
  Country: JP (occurrence: JP)
  Receive Date: 20200611
  Receipt Date: 20200611
  Transmission Date: 20200714
  Serious: Yes (Hospitalization)
  Sender: FDA-Public Use
  Company Number: JP-SLATE RUN PHARMACEUTICALS-20JP000176

PATIENT

DRUGS (7)
  1. GALANTAMINE HYDROBROMIDE USP [Suspect]
     Active Substance: GALANTAMINE HYDROBROMIDE
     Indication: COGNITIVE DISORDER
  2. GALANTAMINE HYDROBROMIDE USP [Suspect]
     Active Substance: GALANTAMINE HYDROBROMIDE
     Indication: PSYCHIATRIC SYMPTOM
     Dosage: 4 MILLIGRAM, BID
     Route: 065
  3. DONEPEZIL. [Concomitant]
     Active Substance: DONEPEZIL
     Indication: POSTERIOR CORTICAL ATROPHY
     Dosage: 10 MILLIGRAM, QD
     Route: 065
  4. MEMANTINE. [Concomitant]
     Active Substance: MEMANTINE
     Indication: COGNITIVE DISORDER
  5. DONEPEZIL. [Concomitant]
     Active Substance: DONEPEZIL
     Dosage: 3 MILLIGRAM, QD
     Route: 065
  6. SUVOREXANT. [Concomitant]
     Active Substance: SUVOREXANT
     Indication: PRODUCT USED FOR UNKNOWN INDICATION
     Dosage: 20 MILLIGRAM, QD
     Route: 065
  7. MEMANTINE. [Concomitant]
     Active Substance: MEMANTINE
     Indication: PSYCHIATRIC SYMPTOM
     Dosage: 10 MILLIGRAM, QD
     Route: 065

REACTIONS (1)
  - Pleurothotonus [Recovering/Resolving]
